FAERS Safety Report 4987832-6 (Version None)
Quarter: 2006Q2

REPORT INFORMATION
  Report Type: 
  Country: None (occurrence: None)
  Receive Date: 20060427
  Receipt Date: 20060427
  Transmission Date: 20061013
  Serious: Yes (Hospitalization)
  Sender: FDA-Public Use
  Company Number: None

PATIENT
  Age: 84 Year
  Sex: Female

DRUGS (2)
  1. AVELOX [Suspect]
     Indication: COUGH
     Dosage: 400 MG QD IV
     Route: 042
     Dates: start: 20051210, end: 20051210
  2. AVELOX [Suspect]
     Indication: DYSPNOEA
     Dosage: 400 MG QD IV
     Route: 042
     Dates: start: 20051210, end: 20051210

REACTIONS (9)
  - COLD SWEAT [None]
  - DYSPNOEA [None]
  - FEELING ABNORMAL [None]
  - HYPERHIDROSIS [None]
  - HYPOTENSION [None]
  - INFUSION RELATED REACTION [None]
  - LOSS OF CONSCIOUSNESS [None]
  - PALLOR [None]
  - SYNCOPE [None]
